FAERS Safety Report 13772186 (Version 2)
Quarter: 2017Q3

REPORT INFORMATION
  Report Type: Spontaneous
  Country: DE (occurrence: DE)
  Receive Date: 20170720
  Receipt Date: 20170720
  Transmission Date: 20171127
  Serious: Yes (Hospitalization, Other)
  Sender: FDA-Public Use
  Company Number: DE-AUROBINDO-AUR-APL-2011-06021

PATIENT
  Age: 90 Year
  Sex: Female

DRUGS (7)
  1. LISINOPRIL. [Suspect]
     Active Substance: LISINOPRIL
     Indication: PRODUCT USED FOR UNKNOWN INDICATION
     Dosage: UNK UNK,UNK,
     Route: 048
     Dates: start: 2011
  2. HALDOL [Suspect]
     Active Substance: HALOPERIDOL
     Indication: PRODUCT USED FOR UNKNOWN INDICATION
     Dosage: 2 MG,UNK,
     Route: 048
     Dates: start: 20111002, end: 20111007
  3. EUNERPAN [Suspect]
     Active Substance: MELPERONE HYDROCHLORIDE
     Indication: PRODUCT USED FOR UNKNOWN INDICATION
     Dosage: 25 MG,UNK,
     Route: 048
     Dates: start: 20111005, end: 20111007
  4. CARVEDILOL. [Suspect]
     Active Substance: CARVEDILOL
     Indication: PRODUCT USED FOR UNKNOWN INDICATION
     Dosage: 25 MG,UNK,
     Route: 048
     Dates: start: 2011
  5. METHIZOL [Concomitant]
     Active Substance: METHIMAZOLE
     Indication: PRODUCT USED FOR UNKNOWN INDICATION
     Dosage: 5 MG,UNK,
     Route: 048
     Dates: start: 2011
  6. TORASEMIDE [Suspect]
     Active Substance: TORSEMIDE
     Indication: PRODUCT USED FOR UNKNOWN INDICATION
     Dosage: 15 MG,UNK,
     Route: 048
     Dates: start: 2011
  7. HALDOL [Suspect]
     Active Substance: HALOPERIDOL
     Dosage: .5 MG,FOUR TIMES/DAY,
     Route: 048
     Dates: start: 20111008, end: 20111008

REACTIONS (7)
  - Infection [Unknown]
  - Syncope [Recovered/Resolved]
  - Drug interaction [Recovered/Resolved]
  - Hypotension [Unknown]
  - Loss of consciousness [Recovered/Resolved]
  - Heart rate decreased [Unknown]
  - C-reactive protein increased [Unknown]

NARRATIVE: CASE EVENT DATE: 20111007
